FAERS Safety Report 8748112 (Version 2)
Quarter: 2012Q4

REPORT INFORMATION
  Report Type: 
  Country: FR (occurrence: FR)
  Receive Date: 20120827
  Receipt Date: 20120830
  Transmission Date: 20130627
  Serious: Yes (Death, Life-Threatening, Hospitalization, Other)
  Sender: FDA-Public Use
  Company Number: FR-PFIZER INC-2012205530

PATIENT
  Age: 61 Year
  Sex: Female

DRUGS (14)
  1. LYRICA [Suspect]
     Indication: PRODUCT USED FOR UNKNOWN INDICATION
     Dosage: 75 mg, 2x/day
     Route: 048
     Dates: end: 20120726
  2. TAHOR [Suspect]
     Indication: PRODUCT USED FOR UNKNOWN INDICATION
     Dosage: 10 mg, 1x/day
     Route: 048
  3. BISOPROLOL FUMARATE [Suspect]
     Indication: PRODUCT USED FOR UNKNOWN INDICATION
     Dosage: 1.25 mg, 3x/day
     Route: 048
     Dates: end: 20120727
  4. TRIATEC [Suspect]
     Indication: PRODUCT USED FOR UNKNOWN INDICATION
     Dosage: 10 mg, 1x/day
     Route: 048
     Dates: end: 20120726
  5. ZOMETA [Suspect]
     Indication: HYPERCALCAEMIA
     Dosage: 4 mg, single
     Route: 042
     Dates: start: 20120719, end: 20120719
  6. ZOMETA [Suspect]
     Indication: PRODUCT USED FOR UNKNOWN INDICATION
  7. INEXIUM [Suspect]
     Indication: PRODUCT USED FOR UNKNOWN INDICATION
     Dosage: 20 mg, 1x/day
     Route: 048
  8. DUROGESIC [Suspect]
     Indication: PRODUCT USED FOR UNKNOWN INDICATION
     Dosage: 50 mg, 1x/day
     Route: 062
     Dates: end: 20120726
  9. CYMBALTA [Suspect]
     Indication: PRODUCT USED FOR UNKNOWN INDICATION
     Dosage: 60 mg, 1x/day
     Route: 048
     Dates: end: 20120726
  10. PLAVIX [Suspect]
     Indication: PRODUCT USED FOR UNKNOWN INDICATION
     Dosage: 75 mg, 1x/day
     Route: 048
  11. LERCAN [Suspect]
     Indication: PRODUCT USED FOR UNKNOWN INDICATION
     Dosage: 10 mg, 1x/day
     Route: 048
     Dates: end: 20120726
  12. DISCOTRINE [Suspect]
     Indication: PRODUCT USED FOR UNKNOWN INDICATION
     Dosage: 5 mg, 1x/day
     Route: 062
     Dates: end: 20120727
  13. PARACETAMOL [Suspect]
     Indication: PRODUCT USED FOR UNKNOWN INDICATION
     Dosage: 1 g, 1x/day
     Route: 048
     Dates: end: 20120726
  14. KARDEGIC [Suspect]
     Indication: PRODUCT USED FOR UNKNOWN INDICATION
     Dosage: 75 mg, 1x/day
     Route: 048

REACTIONS (6)
  - Renal failure acute [Fatal]
  - Confusional state [Fatal]
  - Agitation [Fatal]
  - Acute pulmonary oedema [Fatal]
  - Metastatic pain [Unknown]
  - Hypercalcaemia [Recovered/Resolved]
